FAERS Safety Report 26010780 (Version 3)
Quarter: 2025Q4

REPORT INFORMATION
  Report Type: Spontaneous
  Country: US (occurrence: US)
  Receive Date: 20251107
  Receipt Date: 20251215
  Transmission Date: 20260118
  Serious: Yes (Other)
  Sender: GLAXOSMITHKLINE
  Company Number: US-GSK-US2025143619

PATIENT
  Sex: Female
  Weight: 110 kg

DRUGS (2)
  1. BENLYSTA [Suspect]
     Active Substance: BELIMUMAB
     Indication: Systemic lupus erythematosus
     Dosage: 200 MG, WE
     Dates: start: 2025
  2. BENLYSTA [Suspect]
     Active Substance: BELIMUMAB
     Dosage: 1080 MG

REACTIONS (2)
  - Systemic lupus erythematosus [Unknown]
  - Drug ineffective [Unknown]
